FAERS Safety Report 7745954-0 (Version None)
Quarter: 2011Q3

REPORT INFORMATION
  Report Type: 
  Country: None (occurrence: None)
  Receive Date: 20110913
  Receipt Date: 20110911
  Transmission Date: 20111222
  Serious: No
  Sender: FDA-Public Use
  Company Number: US-PFIZER INC-2011193735

PATIENT
  Sex: Female

DRUGS (1)
  1. NICOTROL [Suspect]
     Indication: SMOKING CESSATION THERAPY
     Dosage: UNK
     Route: 055
     Dates: start: 20110101

REACTIONS (2)
  - ABDOMINAL DISCOMFORT [None]
  - DIZZINESS [None]
